FAERS Safety Report 4378734-7 (Version None)
Quarter: 2004Q2

REPORT INFORMATION
  Report Type: 
  Country: None (occurrence: None)
  Receive Date: 20040609
  Receipt Date: 20040526
  Transmission Date: 20050107
  Serious: Yes (Hospitalization, Disabling)
  Sender: FDA-Public Use
  Company Number: USA040568489

PATIENT
  Age: 52 Year
  Sex: Male
  Weight: 93 kg

DRUGS (1)
  1. HUMULIN 70/30 [Suspect]
     Indication: DIABETES MELLITUS
     Dosage: 166 U DAY
     Dates: start: 19980101

REACTIONS (4)
  - BLOOD GLUCOSE INCREASED [None]
  - CARDIAC DISORDER [None]
  - CARDIOMEGALY [None]
  - PHARMACEUTICAL PRODUCT COMPLAINT [None]
